FAERS Safety Report 14076675 (Version 1)
Quarter: 2017Q4

REPORT INFORMATION
  Report Type: Spontaneous
  Country: KR (occurrence: KR)
  Receive Date: 20171011
  Receipt Date: 20171011
  Transmission Date: 20180321
  Serious: Yes (Other)
  Sender: FDA-Public Use
  Company Number: KR-LANNETT COMPANY, INC.-KR-2017LAN001073

PATIENT

DRUGS (3)
  1. QUETIAPINE. [Suspect]
     Active Substance: QUETIAPINE
     Indication: SCHIZOPHRENIA
     Dosage: 100-400MG
     Route: 065
  2. HALOPERIDOL LACTATE. [Suspect]
     Active Substance: HALOPERIDOL LACTATE
     Indication: SCHIZOPHRENIA
     Dosage: UNK
     Route: 065
  3. CLONAZEPAM. [Suspect]
     Active Substance: CLONAZEPAM
     Indication: SCHIZOPHRENIA
     Dosage: 0.5 MG, UNK
     Route: 065

REACTIONS (1)
  - Parkinson^s disease [Unknown]
